FAERS Safety Report 9018000 (Version 3)
Quarter: 2013Q1

REPORT INFORMATION
  Report Type: Spontaneous
  Country: US (occurrence: US)
  Receive Date: 20130118
  Receipt Date: 20130307
  Transmission Date: 20140127
  Serious: Yes (Hospitalization, Other)
  Sender: FDA-Public Use
  Company Number: US-009507513-1301USA007901

PATIENT
  Sex: Female

DRUGS (3)
  1. PEGINTRON [Suspect]
     Indication: HEPATITIS C
     Dosage: UNK
     Dates: start: 20121130
  2. RIBAVIRIN [Suspect]
     Indication: HEPATITIS C
     Dosage: UNKNOWN
     Route: 048
     Dates: start: 20121130
  3. VICTRELIS [Suspect]
     Indication: HEPATITIS C
     Dosage: UNK
     Route: 048
     Dates: start: 20121228

REACTIONS (19)
  - Nightmare [Unknown]
  - Paranoia [Unknown]
  - Anxiety [Unknown]
  - Suicidal ideation [Unknown]
  - Insomnia [Unknown]
  - Weight increased [Unknown]
  - Aversion [Unknown]
  - Dry mouth [Unknown]
  - Irritability [Unknown]
  - Muscle spasms [Unknown]
  - Tongue disorder [Unknown]
  - Gastrointestinal disorder [Unknown]
  - Depression [Recovered/Resolved]
  - Swollen tongue [Recovered/Resolved]
  - Paranoia [Recovered/Resolved]
  - Pruritus [Recovered/Resolved]
  - Anaemia [Recovered/Resolved]
  - Haemoglobin decreased [Recovered/Resolved]
  - Depression [Unknown]
